FAERS Safety Report 11823703 (Version 2)
Quarter: 2015Q4

REPORT INFORMATION
  Report Type: Spontaneous
  Country: JP (occurrence: JP)
  Receive Date: 20151210
  Receipt Date: 20151214
  Transmission Date: 20160305
  Serious: Yes (Other)
  Sender: FDA-Public Use
  Company Number: JP-ARBOR PHARMACEUTICALS, LLC-JP-2015ARB002587

PATIENT
  Age: 42 Year
  Sex: Male

DRUGS (1)
  1. GLIADEL [Suspect]
     Active Substance: CARMUSTINE
     Indication: ANAPLASTIC ASTROCYTOMA
     Dosage: 7.7 MG, 8 TOTAL

REACTIONS (2)
  - Haemorrhage intracranial [Recovering/Resolving]
  - Vascular pseudoaneurysm ruptured [Recovering/Resolving]
